FAERS Safety Report 16953900 (Version 1)
Quarter: 2019Q4

REPORT INFORMATION
  Report Type: Spontaneous
  Country: US (occurrence: US)
  Receive Date: 20191023
  Receipt Date: 20191023
  Transmission Date: 20200122
  Serious: No
  Sender: FDA-Public Use
  Company Number: US-ABBVIE-19K-163-2904456-00

PATIENT
  Sex: Female

DRUGS (2)
  1. ORILISSA [Suspect]
     Active Substance: ELAGOLIX SODIUM
     Indication: PRODUCT USED FOR UNKNOWN INDICATION
     Route: 048
  2. ORILISSA [Suspect]
     Active Substance: ELAGOLIX SODIUM
     Route: 048

REACTIONS (2)
  - Blood thyroid stimulating hormone abnormal [Unknown]
  - Basedow^s disease [Unknown]
